FAERS Safety Report 6301882-9 (Version None)
Quarter: 2009Q3

REPORT INFORMATION
  Report Type: 
  Country: None (occurrence: None)
  Receive Date: 20090807
  Receipt Date: 20090729
  Transmission Date: 20100115
  Serious: Yes (Hospitalization)
  Sender: FDA-Public Use
  Company Number: JP-ABBOTT-09P-087-0588317-00

PATIENT
  Sex: Female
  Weight: 54 kg

DRUGS (5)
  1. HUMIRA [Suspect]
     Indication: RHEUMATOID ARTHRITIS
     Route: 058
     Dates: start: 20081015, end: 20090328
  2. SPIRONOLACTONE [Concomitant]
     Indication: HYPERTENSION
     Route: 048
  3. ALFACALCIDOL [Concomitant]
     Indication: OSTEOPOROSIS
     Route: 048
  4. ALENDRONATE SODIUM [Concomitant]
     Indication: OSTEOPOROSIS
     Route: 048
  5. SARPOGRELATE HYDROCHLORIDE [Concomitant]
     Indication: DRUG USE FOR UNKNOWN INDICATION
     Route: 048

REACTIONS (2)
  - DEPRESSED LEVEL OF CONSCIOUSNESS [None]
  - PNEUMONIA [None]
